FAERS Safety Report 6934467-1 (Version None)
Quarter: 2010Q3

REPORT INFORMATION
  Report Type: 
  Country: None (occurrence: None)
  Receive Date: 20100820
  Receipt Date: 20100817
  Transmission Date: 20110219
  Serious: No
  Sender: FDA-Public Use
  Company Number: US-B.I. PHARMACEUTICALS,INC./RIDGEFIELD-2010-BP-09393BP

PATIENT
  Sex: Male

DRUGS (2)
  1. ATROVENT HFA [Suspect]
     Indication: SINUS DISORDER
     Dosage: 8 PUF
     Route: 055
     Dates: start: 20100701, end: 20100815
  2. ZYRTEC [Concomitant]
     Indication: SINUS DISORDER
     Dates: start: 20100701, end: 20100801

REACTIONS (7)
  - DIARRHOEA [None]
  - DYSARTHRIA [None]
  - DYSPEPSIA [None]
  - FATIGUE [None]
  - NAUSEA [None]
  - SINUS DISORDER [None]
  - SWOLLEN TONGUE [None]
